FAERS Safety Report 9285698 (Version 1)
Quarter: 2013Q2

REPORT INFORMATION
  Report Type: Spontaneous
  Country: US (occurrence: US)
  Receive Date: 20130513
  Receipt Date: 20130513
  Transmission Date: 20140414
  Serious: Yes (Hospitalization)
  Sender: FDA-Public Use
  Company Number: US-SANOFI-AVENTIS-2013SA046610

PATIENT
  Sex: Female

DRUGS (1)
  1. MULTAQ [Suspect]

REACTIONS (1)
  - Myocardial infarction [Unknown]
